FAERS Safety Report 25396674 (Version 1)
Quarter: 2025Q2

REPORT INFORMATION
  Report Type: Spontaneous
  Country: US (occurrence: None)
  Receive Date: 20250604
  Receipt Date: 20250604
  Transmission Date: 20250717
  Serious: Yes (Other)
  Sender: FDA-CTU
  Company Number: None

PATIENT
  Age: 51 Year
  Sex: Female
  Weight: 96.2 kg

DRUGS (2)
  1. SAPROPTERIN [Suspect]
     Active Substance: SAPROPTERIN
     Indication: Phenylketonuria
     Dosage: FREQUENCY : DAILY;?
     Route: 048
  2. SAPROPTERIN [Suspect]
     Active Substance: SAPROPTERIN
     Indication: Phenylketonuria
     Dosage: FREQUENCY : DAILY;?
     Route: 048

REACTIONS (3)
  - Aphthous ulcer [None]
  - Rash [None]
  - Blister [None]

NARRATIVE: CASE EVENT DATE: 20250409
